FAERS Safety Report 7023113-7 (Version None)
Quarter: 2010Q3

REPORT INFORMATION
  Report Type: 
  Country: None (occurrence: None)
  Receive Date: 20100930
  Receipt Date: 20100922
  Transmission Date: 20110219
  Serious: Yes (Hospitalization)
  Sender: FDA-Public Use
  Company Number: PHHY2010BR63329

PATIENT
  Sex: Male

DRUGS (3)
  1. LESCOL XL [Suspect]
     Route: 048
  2. DIOVAN [Suspect]
     Dosage: 160 MG
  3. DIOVAN [Suspect]
     Dosage: 80 MG

REACTIONS (2)
  - INFARCTION [None]
  - SPEECH DISORDER [None]
